FAERS Safety Report 17848520 (Version 3)
Quarter: 2020Q3

REPORT INFORMATION
  Report Type: Report from Study
  Country: CA (occurrence: CA)
  Receive Date: 20200602
  Receipt Date: 20200709
  Transmission Date: 20201103
  Serious: Yes (Death, Hospitalization)
  Sender: FDA-Public Use
  Company Number: CA-ACTELION-A-CH2020-205586

PATIENT
  Age: 77 Year
  Sex: Female
  Weight: 68 kg

DRUGS (4)
  1. FUROSEMIDE. [Concomitant]
     Active Substance: FUROSEMIDE
     Indication: FLUID RETENTION
     Dosage: UNK
     Route: 048
     Dates: start: 20180924, end: 20200609
  2. REVATIO [Concomitant]
     Active Substance: SILDENAFIL CITRATE
     Dosage: 60 MG, QD
     Dates: start: 20181011
  3. OPSUMIT [Suspect]
     Active Substance: MACITENTAN
     Indication: PULMONARY ARTERIAL HYPERTENSION
     Dosage: 10 MG, QD
     Route: 048
     Dates: start: 20190603, end: 20200609
  4. SPIRONOLACTONE. [Concomitant]
     Active Substance: SPIRONOLACTONE
     Indication: FLUID RETENTION
     Dosage: UNK
     Route: 048
     Dates: start: 20180514, end: 20200609

REACTIONS (13)
  - Haematochezia [Recovering/Resolving]
  - Respiratory failure [Fatal]
  - Renal failure [Fatal]
  - Diarrhoea [Recovering/Resolving]
  - Gastrointestinal vascular malformation haemorrhagic [Recovering/Resolving]
  - Haemoglobin decreased [Recovering/Resolving]
  - Glomerular filtration rate decreased [Fatal]
  - Gastrointestinal haemorrhage [Recovering/Resolving]
  - Anaemia [Not Recovered/Not Resolved]
  - Frequent bowel movements [Recovering/Resolving]
  - Renal impairment [Unknown]
  - Condition aggravated [Unknown]
  - Abdominal pain upper [Recovering/Resolving]

NARRATIVE: CASE EVENT DATE: 20191112
